FAERS Safety Report 8474164-7 (Version None)
Quarter: 2012Q2

REPORT INFORMATION
  Report Type: 
  Country: None (occurrence: None)
  Receive Date: 20120628
  Receipt Date: 20120622
  Transmission Date: 20120825
  Serious: No
  Sender: FDA-Public Use
  Company Number: US-PFIZER INC-2012152057

PATIENT
  Age: 49 Year
  Sex: Male

DRUGS (2)
  1. INLYTA [Suspect]
     Dosage: 5 MG, 1X/DAY
     Route: 048
  2. INLYTA [Suspect]
     Indication: RENAL CANCER
     Dosage: 5 MG, 2X/DAY
     Route: 048
     Dates: start: 20120301

REACTIONS (4)
  - WEIGHT DECREASED [None]
  - DECREASED APPETITE [None]
  - MYALGIA [None]
  - FATIGUE [None]
